FAERS Safety Report 13781843 (Version 1)
Quarter: 2017Q3

REPORT INFORMATION
  Report Type: Spontaneous
  Country: US (occurrence: US)
  Receive Date: 20170724
  Receipt Date: 20170724
  Transmission Date: 20171127
  Serious: No
  Sender: FDA-Public Use
  Company Number: None

PATIENT
  Age: 70 Year
  Sex: Female

DRUGS (8)
  1. LEVOTHYROXINE. [Concomitant]
     Active Substance: LEVOTHYROXINE
  2. ZYRTEC [Concomitant]
     Active Substance: CETIRIZINE HYDROCHLORIDE
  3. CALCIUM CITRATE [Concomitant]
     Active Substance: CALCIUM CITRATE
  4. RIBAVIRIN TAB 200MG [Suspect]
     Active Substance: RIBAVIRIN
     Indication: HEPATITIS C
     Route: 048
     Dates: start: 20170424, end: 20170719
  5. ACYCLOVIR. [Concomitant]
     Active Substance: ACYCLOVIR
  6. METOPROLOL. [Concomitant]
     Active Substance: METOPROLOL
  7. PREMARIN [Concomitant]
     Active Substance: ESTROGENS, CONJUGATED
  8. CENTRUM VITAMINS LIQUID [Concomitant]
     Active Substance: VITAMINS

REACTIONS (2)
  - Diarrhoea [None]
  - Anaemia [None]

NARRATIVE: CASE EVENT DATE: 20170724
